FAERS Safety Report 22075929 (Version 1)
Quarter: 2023Q1

REPORT INFORMATION
  Report Type: Spontaneous
  Country: US (occurrence: US)
  Receive Date: 20230308
  Receipt Date: 20230308
  Transmission Date: 20230418
  Serious: No
  Sender: FDA-Public Use
  Company Number: US-BAUSCHBL-2023BNL001730

PATIENT
  Age: 76 Year
  Sex: Female
  Weight: 56.750 kg

DRUGS (1)
  1. OPCON-A [Suspect]
     Active Substance: NAPHAZOLINE HYDROCHLORIDE\PHENIRAMINE MALEATE
     Indication: Eye allergy
     Route: 047
     Dates: start: 20230228, end: 20230228

REACTIONS (1)
  - Eyelid sensory disorder [Recovered/Resolved]

NARRATIVE: CASE EVENT DATE: 20230228
